FAERS Safety Report 8474434-2 (Version None)
Quarter: 2012Q2

REPORT INFORMATION
  Report Type: 
  Country: None (occurrence: None)
  Receive Date: 20120628
  Receipt Date: 20120621
  Transmission Date: 20120825
  Serious: Yes (Death)
  Sender: FDA-Public Use
  Company Number: PHEH2012US010911

PATIENT
  Sex: Female
  Weight: 90 kg

DRUGS (1)
  1. TOBI [Suspect]
     Indication: CYSTIC FIBROSIS
     Dosage: 300 MG, BID (28 DAYS ON 28 DAYS OFF)
     Dates: start: 20101001

REACTIONS (1)
  - DIABETIC KETOACIDOSIS [None]
